FAERS Safety Report 13884483 (Version 1)
Quarter: 2017Q3

REPORT INFORMATION
  Report Type: Report from Study
  Country: US (occurrence: US)
  Receive Date: 20170821
  Receipt Date: 20170821
  Transmission Date: 20171127
  Serious: No
  Sender: FDA-Public Use
  Company Number: US-SWEDISH ORPHAN INTERNATIONAL AB-2016US0528

PATIENT
  Sex: Female

DRUGS (1)
  1. KINERET [Suspect]
     Active Substance: ANAKINRA
     Indication: AUTOINFLAMMATORY DISEASE
     Route: 058
     Dates: start: 20160629

REACTIONS (6)
  - Weight decreased [Unknown]
  - Fear of injection [Unknown]
  - Decreased appetite [Unknown]
  - Arthralgia [Unknown]
  - Injection site bruising [Unknown]
  - Nausea [Unknown]
